FAERS Safety Report 16911432 (Version 2)
Quarter: 2019Q4

REPORT INFORMATION
  Report Type: Report from Study
  Country: IT (occurrence: IT)
  Receive Date: 20191013
  Receipt Date: 20191028
  Transmission Date: 20200122
  Serious: Yes (Hospitalization)
  Sender: FDA-Public Use
  Company Number: IT-BEH-2019107626

PATIENT
  Age: 43 Year
  Sex: Male
  Weight: 71 kg

DRUGS (6)
  1. IDELVION [Suspect]
     Active Substance: COAGULATION FACTOR IX RECOMBINANT HUMAN
     Indication: FACTOR IX DEFICIENCY
     Dosage: 4000 INTERNATIONAL UNIT/10 DAYS
     Route: 042
     Dates: start: 20170603
  2. IDELVION [Suspect]
     Active Substance: COAGULATION FACTOR IX RECOMBINANT HUMAN
     Dosage: 4000 INTERNATIONAL UNIT/10 DAYS
     Route: 042
     Dates: start: 20190912
  3. CARDICOR [Concomitant]
     Active Substance: BISOPROLOL
     Indication: HYPERTENSION
     Dosage: 10 MILLIGRAM, QD
     Route: 048
  4. IDELVION [Suspect]
     Active Substance: COAGULATION FACTOR IX RECOMBINANT HUMAN
     Indication: FACTOR IX DEFICIENCY
     Dosage: 4000 INTERNATIONAL UNIT/10 DAYS
     Route: 042
     Dates: start: 20170603
  5. IDELVION [Suspect]
     Active Substance: COAGULATION FACTOR IX RECOMBINANT HUMAN
     Dosage: 4000 INTERNATIONAL UNIT/10 DAYS
     Route: 042
     Dates: start: 20190912
  6. RAMIPRIL. [Concomitant]
     Active Substance: RAMIPRIL
     Indication: HYPERTENSION
     Dosage: 2.5 MILLIGRAM, QD
     Route: 048

REACTIONS (1)
  - Angina pectoris [Recovered/Resolved]

NARRATIVE: CASE EVENT DATE: 20190916
